FAERS Safety Report 17340452 (Version 1)
Quarter: 2020Q1

REPORT INFORMATION
  Report Type: Report from Study
  Country: UG (occurrence: UG)
  Receive Date: 20200129
  Receipt Date: 20200129
  Transmission Date: 20200409
  Serious: Yes (Other)
  Sender: FDA-Public Use
  Company Number: UG-GILEAD-2019-0436345

PATIENT
  Age: 20 Year
  Sex: Female
  Weight: 65 kg

DRUGS (6)
  1. CEFTRIAXONE. [Concomitant]
     Active Substance: CEFTRIAXONE
     Indication: TYPHOID FEVER
     Route: 042
  2. METRONIDAZOLE. [Concomitant]
     Active Substance: METRONIDAZOLE
     Indication: ABORTION
     Dosage: UNK
     Dates: start: 20191119, end: 20190922
  3. AMPICILLIN + CLOXACILLIN [Concomitant]
     Active Substance: AMPICILLIN\CLOXACILLIN
     Indication: ABORTION
     Dosage: UNK
     Dates: start: 20190918, end: 20190922
  4. EMTRICITABINE/TENOFOVIR DISOPROXIL FUMARATE [Suspect]
     Active Substance: EMTRICITABINE\TENOFOVIR DISOPROXIL FUMARATE
     Indication: PROPHYLAXIS AGAINST HIV INFECTION
     Dosage: UNK
     Route: 048
     Dates: start: 20190917
  5. IBUPROFEN. [Concomitant]
     Active Substance: IBUPROFEN
     Indication: ABORTION
     Dosage: UNK
     Dates: start: 20190918, end: 20190922
  6. PIROXICAM. [Concomitant]
     Active Substance: PIROXICAM
     Indication: ABDOMINAL PAIN

REACTIONS (2)
  - Maternal exposure during pregnancy [Recovered/Resolved]
  - Abortion spontaneous [Recovered/Resolved]

NARRATIVE: CASE EVENT DATE: 20190917
